FAERS Safety Report 18451523 (Version 1)
Quarter: 2020Q4

REPORT INFORMATION
  Report Type: Spontaneous
  Country: US (occurrence: US)
  Receive Date: 20201102
  Receipt Date: 20201102
  Transmission Date: 20210114
  Serious: Yes (Other)
  Sender: FDA-Public Use
  Company Number: US-AMGEN-USASP2020173782

PATIENT
  Sex: Female

DRUGS (1)
  1. PROLIA [Suspect]
     Active Substance: DENOSUMAB
     Indication: PRODUCT USED FOR UNKNOWN INDICATION
     Dosage: UNK
     Route: 065

REACTIONS (7)
  - Humerus fracture [Unknown]
  - Femur fracture [Unknown]
  - Quality of life decreased [Unknown]
  - Spinal fracture [Unknown]
  - Wrist fracture [Unknown]
  - Upper limb fracture [Unknown]
  - Alopecia [Unknown]

NARRATIVE: CASE EVENT DATE: 2019
